FAERS Safety Report 11684697 (Version 2)
Quarter: 2015Q4

REPORT INFORMATION
  Report Type: Spontaneous
  Country: JP (occurrence: JP)
  Receive Date: 20151029
  Receipt Date: 20151030
  Transmission Date: 20160304
  Serious: Yes (Death)
  Sender: FDA-Public Use
  Company Number: JP-009507513-1510JPN011330

PATIENT
  Age: 49 Year
  Sex: Female

DRUGS (1)
  1. TEMODAL [Suspect]
     Active Substance: TEMOZOLOMIDE
     Dosage: UNK
     Route: 041
     Dates: start: 20140116, end: 201401

REACTIONS (4)
  - Pyrexia [Unknown]
  - Depressed level of consciousness [Unknown]
  - Disease progression [Fatal]
  - Hyperhidrosis [Unknown]

NARRATIVE: CASE EVENT DATE: 20140421
